FAERS Safety Report 24903951 (Version 2)
Quarter: 2025Q3

REPORT INFORMATION
  Report Type: Report from Study
  Country: US (occurrence: US)
  Receive Date: 20250130
  Receipt Date: 20250809
  Transmission Date: 20251020
  Serious: Yes (Other)
  Sender: ALEXION PHARMACEUTICALS
  Company Number: US-AstraZeneca-CH-00792318A

PATIENT

DRUGS (1)
  1. FORMOTEROL FUMARATE\GLYCOPYRROLATE [Suspect]
     Active Substance: FORMOTEROL FUMARATE\GLYCOPYRROLATE
     Route: 065

REACTIONS (2)
  - Neoplasm malignant [Unknown]
  - Product use issue [Unknown]
